FAERS Safety Report 22231302 (Version 1)
Quarter: 2023Q2

REPORT INFORMATION
  Report Type: Spontaneous
  Country: FR (occurrence: FR)
  Receive Date: 20230420
  Receipt Date: 20230420
  Transmission Date: 20230722
  Serious: Yes (Other)
  Sender: FDA-Public Use
  Company Number: FR-AFSSAPS-NY2023000161

PATIENT
  Age: 55 Year
  Sex: Female
  Weight: 55 kg

DRUGS (5)
  1. EZETIMIBE [Suspect]
     Active Substance: EZETIMIBE
     Indication: Cardiovascular event prophylaxis
     Dosage: 1 DOSAGE FORM, DAILY
     Route: 048
     Dates: start: 20230124
  2. SIMVASTATIN [Suspect]
     Active Substance: SIMVASTATIN
     Indication: Cardiovascular event prophylaxis
     Dosage: 1 NIGHT
     Route: 048
     Dates: start: 20230109, end: 20230123
  3. KOMBOGLYZE 2,5 mg/1000 mg, comprime pellicule [Concomitant]
     Indication: Diabetes mellitus
     Dosage: UNK
     Route: 048
  4. TRULICITY 4,5 mg, solution injectable en stylo pre-rempli [Concomitant]
     Indication: Diabetes mellitus
     Dosage: 1 DOSAGE FORM, WEEKLY
     Route: 048
  5. GLYBURIDE [Concomitant]
     Active Substance: GLYBURIDE
     Indication: Diabetes mellitus
     Dosage: 5 MILLIGRAM, TID
     Route: 048

REACTIONS (1)
  - Diabetes mellitus inadequate control [Not Recovered/Not Resolved]

NARRATIVE: CASE EVENT DATE: 20230109
